FAERS Safety Report 7722125-5 (Version None)
Quarter: 2011Q3

REPORT INFORMATION
  Report Type: 
  Country: None (occurrence: None)
  Receive Date: 20110831
  Receipt Date: 20110817
  Transmission Date: 20111222
  Serious: Yes (Other)
  Sender: FDA-Public Use
  Company Number: GB-PFIZER INC-2011190351

PATIENT
  Sex: Male

DRUGS (3)
  1. DOXAZOSIN MESYLATE [Suspect]
     Dosage: UNK
  2. LISINOPRIL [Interacting]
     Dosage: UNK
  3. ABILIFY [Interacting]
     Dosage: 20 MG, 1X/DAY
     Route: 065

REACTIONS (2)
  - DRUG INTERACTION [None]
  - HAEMODIALYSIS [None]
